FAERS Safety Report 7814465-6 (Version None)
Quarter: 2011Q4

REPORT INFORMATION
  Report Type: 
  Country: None (occurrence: None)
  Receive Date: 20111014
  Receipt Date: 20111009
  Transmission Date: 20120403
  Serious: Yes (Other)
  Sender: FDA-Public Use
  Company Number: PHHO2010CN11001

PATIENT
  Sex: Male
  Weight: 70 kg

DRUGS (1)
  1. LDT600 [Suspect]
     Indication: HEPATITIS B
     Dosage: 600 MG DAILY
     Route: 048
     Dates: start: 20090929, end: 20100719

REACTIONS (4)
  - NEUROPATHY PERIPHERAL [None]
  - FATIGUE [None]
  - VOMITING [None]
  - NAUSEA [None]
